FAERS Safety Report 4343517-0 (Version None)
Quarter: 2004Q2

REPORT INFORMATION
  Report Type: 
  Country: None (occurrence: None)
  Receive Date: 20040419
  Receipt Date: 20040406
  Transmission Date: 20050107
  Serious: Yes (Other)
  Sender: FDA-Public Use
  Company Number: 200411665BCC

PATIENT
  Sex: Female
  Weight: 99.7913 kg

DRUGS (6)
  1. ALEVE (CAPLET) [Suspect]
     Indication: ARTHRITIS
     Dosage: 220 MG, QD, ORAL
     Route: 048
  2. LASIX [Concomitant]
  3. TOPROL-XL [Concomitant]
  4. POTASSIUM SUPPLEMENT [Concomitant]
  5. CAPTOPRIL [Concomitant]
  6. VITAMIN E SUPPLEMENT [Concomitant]

REACTIONS (3)
  - BLOOD TEST ABNORMAL [None]
  - URINE ANALYSIS ABNORMAL [None]
  - URINE PROTEIN/CREATININE RATIO DECREASED [None]
